FAERS Safety Report 13070197 (Version 1)
Quarter: 2016Q4

REPORT INFORMATION
  Report Type: Spontaneous
  Country: US (occurrence: US)
  Receive Date: 20161228
  Receipt Date: 20161228
  Transmission Date: 20170207
  Serious: No
  Sender: FDA-Public Use
  Company Number: US-ASTRAZENECA-2016SF34380

PATIENT
  Age: 651 Month
  Sex: Female
  Weight: 90.7 kg

DRUGS (9)
  1. GLUMETZA [Concomitant]
     Active Substance: METFORMIN HYDROCHLORIDE
     Indication: DIABETES MELLITUS
     Route: 048
  2. LEVEMIR [Concomitant]
     Active Substance: INSULIN DETEMIR
     Indication: DIABETES MELLITUS
     Dosage: 36 UNITS AND DIVIDED AS 15 TO 17 UNITS IN THE MORNING
     Route: 058
  3. GLIPIZIDE. [Concomitant]
     Active Substance: GLIPIZIDE
     Indication: DIABETES MELLITUS
     Route: 048
  4. PREVACID [Concomitant]
     Active Substance: LANSOPRAZOLE
     Indication: GASTROOESOPHAGEAL REFLUX DISEASE
     Route: 048
  5. ASPIRIN. [Concomitant]
     Active Substance: ASPIRIN
     Indication: ANTICOAGULANT THERAPY
     Route: 048
  6. BRILINTA [Suspect]
     Active Substance: TICAGRELOR
     Indication: PATENT DUCTUS ARTERIOSUS
     Route: 048
     Dates: start: 201609, end: 20161205
  7. HUMALOG R INSULIN [Concomitant]
     Indication: DIABETES MELLITUS
     Dosage: SCALE 3 TIMES A DAY WITH 2 CORRECTIONS DAILY.
     Route: 058
  8. ZETIA [Concomitant]
     Active Substance: EZETIMIBE
     Indication: BLOOD CHOLESTEROL
     Route: 048
  9. SYNTHROID [Concomitant]
     Active Substance: LEVOTHYROXINE SODIUM
     Indication: THYROID DISORDER

REACTIONS (11)
  - Weight increased [Unknown]
  - Sleep disorder due to general medical condition, insomnia type [Unknown]
  - Nocturnal dyspnoea [Unknown]
  - Chest pain [Unknown]
  - Sleep disorder [Unknown]
  - Hypoaesthesia [Unknown]
  - Breast pain [Unknown]
  - Paraesthesia [Unknown]
  - Dyspnoea [Unknown]
  - Drug dose omission [Unknown]
  - Product use issue [Unknown]

NARRATIVE: CASE EVENT DATE: 201609
